FAERS Safety Report 18693736 (Version 1)
Quarter: 2021Q1

REPORT INFORMATION
  Report Type: Report from Study
  Country: US (occurrence: US)
  Receive Date: 20210104
  Receipt Date: 20210104
  Transmission Date: 20210419
  Serious: Yes (Death, Hospitalization, Other)
  Sender: FDA-Public Use
  Company Number: US-VISTAPHARM, INC.-VER202012-002245

PATIENT
  Age: 52 Year
  Sex: Male

DRUGS (3)
  1. CLOBAZAM. [Suspect]
     Active Substance: CLOBAZAM
     Indication: EPILEPTIC ENCEPHALOPATHY
     Dosage: 5 MG
     Route: 065
  2. CLOBAZAM. [Suspect]
     Active Substance: CLOBAZAM
     Dosage: 5 MG
     Route: 065
  3. CLOBAZAM. [Suspect]
     Active Substance: CLOBAZAM
     Dosage: 10 MG
     Route: 065

REACTIONS (5)
  - Product use in unapproved indication [Unknown]
  - Salivary hypersecretion [Unknown]
  - Drooling [Unknown]
  - Somnolence [Unknown]
  - Pneumonia aspiration [Fatal]
